FAERS Safety Report 25642500 (Version 1)
Quarter: 2025Q3

REPORT INFORMATION
  Report Type: Spontaneous
  Country: US (occurrence: US)
  Receive Date: 20250805
  Receipt Date: 20250805
  Transmission Date: 20251020
  Serious: No
  Sender: AMGEN
  Company Number: US-AMGEN-USASP2025153283

PATIENT
  Age: 67 Year
  Sex: Female

DRUGS (25)
  1. OTEZLA [Suspect]
     Active Substance: APREMILAST
     Indication: Psoriasis
     Dosage: 30 MILLIGRAM, BID
     Route: 048
     Dates: start: 20230901
  2. APAP [Concomitant]
     Active Substance: ACETAMINOPHEN
  3. ALPRAZOLAM [Concomitant]
     Active Substance: ALPRAZOLAM
  4. ATORVASTATIN [Concomitant]
     Active Substance: ATORVASTATIN
  5. CARVEDILOL [Concomitant]
     Active Substance: CARVEDILOL
  6. CELECOXIB [Concomitant]
     Active Substance: CELECOXIB
  7. CLINDAMYCIN [Concomitant]
     Active Substance: CLINDAMYCIN
  8. CLOBETASOL [Concomitant]
     Active Substance: CLOBETASOL
  9. DAPAGLIFLOZIN [Concomitant]
     Active Substance: DAPAGLIFLOZIN
  10. FARXIGA [Concomitant]
     Active Substance: DAPAGLIFLOZIN PROPANEDIOL
  11. FUROSEMIDE [Concomitant]
     Active Substance: FUROSEMIDE
  12. GABAPENTIN [Concomitant]
     Active Substance: GABAPENTIN
  13. KERENDIA [Concomitant]
     Active Substance: FINERENONE
  14. LANTUS [Concomitant]
     Active Substance: INSULIN GLARGINE
  15. LIDOCAINE [Concomitant]
     Active Substance: LIDOCAINE
  16. LOSARTAN [Concomitant]
     Active Substance: LOSARTAN
  17. METFORMIN [Concomitant]
     Active Substance: METFORMIN HYDROCHLORIDE
  18. MUPIROCIN [Concomitant]
     Active Substance: MUPIROCIN
  19. METHYLPREDNISOLONE [Concomitant]
     Active Substance: METHYLPREDNISOLONE
  20. OZEMPIC [Concomitant]
     Active Substance: SEMAGLUTIDE
  21. PREGABALIN [Concomitant]
     Active Substance: PREGABALIN
  22. TIZANIDINE [Concomitant]
     Active Substance: TIZANIDINE
  23. TRAMADOL [Concomitant]
     Active Substance: TRAMADOL
  24. VALSARTAN [Concomitant]
     Active Substance: VALSARTAN
  25. VELTASSA [Concomitant]
     Active Substance: PATIROMER

REACTIONS (1)
  - Papule [Not Recovered/Not Resolved]
